FAERS Safety Report 5380976-9 (Version None)
Quarter: 2007Q3

REPORT INFORMATION
  Report Type: 
  Country: None (occurrence: None)
  Receive Date: 20070702
  Receipt Date: 20061129
  Transmission Date: 20080115
  Serious: Yes (Hospitalization)
  Sender: FDA-Public Use
  Company Number: SPV1-2006-01328

PATIENT
  Sex: Female

DRUGS (3)
  1. PENTASA [Suspect]
     Indication: COLITIS ULCERATIVE
     Dosage: 2-250MG TABLETS, 3X/DAY, ORAL
     Route: 048
     Dates: start: 20060905, end: 20060926
  2. MULTIVITAMIN /02358601/(ASCORBIC ACID, BIOTIN, CALCIUM PANTOTHENATE, C [Concomitant]
  3. HYDROCHLORIDE, TOCOPHERYL ACETATE) [Concomitant]

REACTIONS (3)
  - ABDOMINAL PAIN [None]
  - DIARRHOEA [None]
  - RECTAL HAEMORRHAGE [None]
